FAERS Safety Report 8483629-3 (Version None)
Quarter: 2012Q3

REPORT INFORMATION
  Report Type: 
  Country: None (occurrence: None)
  Receive Date: 20120702
  Receipt Date: 20120626
  Transmission Date: 20120928
  Serious: Yes (Other)
  Sender: FDA-Public Use
  Company Number: US-ABBOTT-11P-163-0734621-00

PATIENT
  Sex: Male
  Weight: 95.34 kg

DRUGS (12)
  1. HUMIRA [Suspect]
     Indication: CROHN'S DISEASE
     Dosage: 40 MG QOW
     Dates: start: 20080301
  2. TOPROL-XL [Concomitant]
     Indication: HYPERTENSION
  3. SULAR [Concomitant]
     Indication: HYPERTENSION
  4. CENTRUM [Concomitant]
     Indication: VITAMIN SUPPLEMENTATION
  5. CELEBREX [Concomitant]
     Indication: BACK PAIN
  6. CELEBREX [Concomitant]
     Indication: NECK PAIN
  7. PURINETHOL [Concomitant]
     Indication: CROHN'S DISEASE
  8. HYDROCHLOROTHIAZDE TAB [Concomitant]
     Indication: HYPERTENSION
  9. VITAMIN-MINERAL COMPOUND TAB [Concomitant]
     Indication: MACULAR DEGENERATION
  10. CODEINE SULFATE [Concomitant]
     Indication: DIARRHOEA
  11. LOMOTIL [Concomitant]
     Indication: DIARRHOEA
     Dosage: DAILY DOSE: 8 PILLS
  12. PREDNISONE TAB [Concomitant]
     Indication: CROHN'S DISEASE

REACTIONS (12)
  - EYE PAIN [None]
  - DRUG INEFFECTIVE [None]
  - MELANOCYTIC NAEVUS [None]
  - LARYNGEAL OEDEMA [None]
  - HEART RATE INCREASED [None]
  - ORAL PAIN [None]
  - DYSPHONIA [None]
  - NASAL CONGESTION [None]
  - HERPES ZOSTER [None]
  - SKIN PAPILLOMA [None]
  - SCAB [None]
  - PARANOIA [None]
